FAERS Safety Report 22073054 (Version 1)
Quarter: 2023Q1

REPORT INFORMATION
  Report Type: Report from Study
  Country: CO (occurrence: CO)
  Receive Date: 20230308
  Receipt Date: 20230308
  Transmission Date: 20230417
  Serious: Yes (Hospitalization, Other)
  Sender: FDA-Public Use
  Company Number: CO-ASTELLAS-2023US007454

PATIENT
  Age: 45 Year
  Sex: Male
  Weight: 54 kg

DRUGS (2)
  1. TACROLIMUS [Suspect]
     Active Substance: TACROLIMUS
     Indication: Renal transplant
     Dosage: 14 MG, ONCE DAILY (STRENGTH: 5 MG, 3 MG AND 1 MG)
     Route: 048
     Dates: start: 20220220
  2. TACROLIMUS [Suspect]
     Active Substance: TACROLIMUS
     Dosage: 11 MG, ONCE DAILY (STRENGTH: 5 MG AND 3 MG)
     Route: 048

REACTIONS (2)
  - Secondary immunodeficiency [Unknown]
  - Gastroenteritis [Unknown]
